FAERS Safety Report 7681218-1 (Version None)
Quarter: 2011Q3

REPORT INFORMATION
  Report Type: 
  Country: None (occurrence: None)
  Receive Date: 20110812
  Receipt Date: 20110811
  Transmission Date: 20111222
  Serious: Yes (Hospitalization)
  Sender: FDA-Public Use
  Company Number: IT-SANOFI-AVENTIS-2011SA050669

PATIENT
  Age: 81 Year
  Sex: Female

DRUGS (3)
  1. CARVEDILOL [Suspect]
     Route: 048
     Dates: start: 20060215, end: 20110215
  2. KARVEA [Suspect]
     Route: 048
     Dates: start: 20010215, end: 20110215
  3. LASIX [Suspect]
     Route: 048
     Dates: start: 20010215, end: 20110215

REACTIONS (3)
  - FALL [None]
  - HEAD INJURY [None]
  - ORTHOSTATIC HYPOTENSION [None]
